FAERS Safety Report 15767085 (Version 2)
Quarter: 2019Q1

REPORT INFORMATION
  Report Type: Report from Study
  Country: IT (occurrence: IT)
  Receive Date: 20181227
  Receipt Date: 20190213
  Transmission Date: 20190417
  Serious: Yes (Hospitalization, Other)
  Sender: FDA-Public Use
  Company Number: IT-BAYER-2018-243404

PATIENT
  Age: 76 Year
  Sex: Male

DRUGS (9)
  1. BISOPROLOL [Concomitant]
     Active Substance: BISOPROLOL
     Dosage: 2.5 MG, QD
  2. RAMIPRIL. [Interacting]
     Active Substance: RAMIPRIL
     Dosage: 7.5 MG, QD
  3. GLIMEPIRIDE. [Concomitant]
     Active Substance: GLIMEPIRIDE
     Dosage: 1 MG, QD
  4. FEBUXOSTAT. [Concomitant]
     Active Substance: FEBUXOSTAT
     Dosage: UNK
  5. METFORMIN [Suspect]
     Active Substance: METFORMIN HYDROCHLORIDE
     Indication: TYPE 2 DIABETES MELLITUS
     Dosage: 1000 MG, TID
  6. ATORVASTATIN [Concomitant]
     Active Substance: ATORVASTATIN
     Dosage: UNK
  7. LANSOPRAZOLE. [Concomitant]
     Active Substance: LANSOPRAZOLE
     Dosage: UNK
  8. ASPIRIN. [Suspect]
     Active Substance: ASPIRIN
     Dosage: 100 MG, QD
  9. FUROSEMIDE. [Interacting]
     Active Substance: FUROSEMIDE
     Dosage: 25 MG, BID

REACTIONS (8)
  - Hypotension [None]
  - Vomiting [None]
  - Diarrhoea [None]
  - Acute kidney injury [None]
  - Labelled drug-drug interaction medication error [None]
  - Hypovolaemic shock [None]
  - Post procedural haemorrhage [None]
  - Dyspnoea [None]

NARRATIVE: CASE EVENT DATE: 20170212
